FAERS Safety Report 6505864-3 (Version None)
Quarter: 2009Q4

REPORT INFORMATION
  Report Type: 
  Country: None (occurrence: None)
  Receive Date: 20091218
  Receipt Date: 20091214
  Transmission Date: 20100525
  Serious: Yes (Hospitalization)
  Sender: FDA-Public Use
  Company Number: FR-BRISTOL-MYERS SQUIBB COMPANY-14895122

PATIENT
  Age: 65 Year
  Sex: Female

DRUGS (11)
  1. DAFALGAN CODEINE [Suspect]
     Dosage: ORALLY 4 INTAKES
     Route: 048
     Dates: start: 20090928, end: 20091015
  2. GLUCOPHAGE [Suspect]
     Route: 048
     Dates: end: 20091015
  3. BI-PROFENID [Suspect]
     Dosage: 2 INTAKES ORALLY
     Route: 048
     Dates: start: 20090928, end: 20091015
  4. TRANSIPEG [Suspect]
     Dosage: 2 INTAKES ORALLY
     Route: 048
     Dates: start: 20090928, end: 20091015
  5. RANIPLEX [Suspect]
     Route: 048
     Dates: end: 20091015
  6. TAHOR [Suspect]
     Route: 048
     Dates: end: 20091015
  7. CALTRATE [Suspect]
     Route: 048
     Dates: end: 20091015
  8. DIAMICRON [Suspect]
     Route: 048
     Dates: end: 20091015
  9. FLECAINIDE ACETATE [Suspect]
     Dosage: FLECAINE SR
     Route: 048
     Dates: end: 20091015
  10. VASTAREL [Suspect]
     Route: 048
     Dates: end: 20091015
  11. ZELITREX [Concomitant]

REACTIONS (7)
  - DECREASED APPETITE [None]
  - DEHYDRATION [None]
  - DIARRHOEA [None]
  - GENERAL PHYSICAL HEALTH DETERIORATION [None]
  - RENAL FAILURE [None]
  - RENAL FAILURE ACUTE [None]
  - VOMITING [None]
